FAERS Safety Report 8308052-3 (Version None)
Quarter: 2012Q1

REPORT INFORMATION
  Report Type: 
  Country: None (occurrence: None)
  Receive Date: 20120327
  Receipt Date: 20100415
  Transmission Date: 20120608
  Serious: Yes (Other)
  Sender: FDA-Public Use
  Company Number: PHEH2009US13878

PATIENT
  Age: 58 Year
  Sex: Female
  Weight: 55.3 kg

DRUGS (8)
  1. LEVOTHYROXINE SODIUM [Concomitant]
  2. SOTALOL HCL [Concomitant]
  3. GLEEVEC [Suspect]
     Indication: CHRONIC MYELOID LEUKAEMIA
     Dosage: 400 MG, QD, ORAL: 200 MG, QD : 300 MG, QD, ORAL : 400 MG, QD
     Route: 048
     Dates: start: 20091112, end: 20091118
  4. GLEEVEC [Suspect]
     Indication: CHRONIC MYELOID LEUKAEMIA
     Dosage: 400 MG, QD, ORAL: 200 MG, QD : 300 MG, QD, ORAL : 400 MG, QD
     Route: 048
     Dates: start: 20091119
  5. GLEEVEC [Suspect]
     Indication: CHRONIC MYELOID LEUKAEMIA
     Dosage: 400 MG, QD, ORAL: 200 MG, QD : 300 MG, QD, ORAL : 400 MG, QD
     Route: 048
     Dates: start: 20090907, end: 20091008
  6. GLEEVEC [Suspect]
     Indication: CHRONIC MYELOID LEUKAEMIA
     Dosage: 400 MG, QD, ORAL: 200 MG, QD : 300 MG, QD, ORAL : 400 MG, QD
     Route: 048
     Dates: start: 20091023, end: 20091111
  7. PROTONIX [Concomitant]
  8. OMEPRAZOLE [Concomitant]

REACTIONS (15)
  - DEPRESSION [None]
  - FATIGUE [None]
  - HAEMOGLOBIN DECREASED [None]
  - NAUSEA [None]
  - OEDEMA [None]
  - WHITE BLOOD CELL COUNT DECREASED [None]
  - FACE OEDEMA [None]
  - OEDEMA PERIPHERAL [None]
  - LACRIMATION DECREASED [None]
  - HAEMATOCRIT DECREASED [None]
  - MALAISE [None]
  - TINNITUS [None]
  - OCULAR HYPERAEMIA [None]
  - RED BLOOD CELL COUNT DECREASED [None]
  - GRANULOCYTES ABNORMAL [None]
